FAERS Safety Report 24931824 (Version 1)
Quarter: 2025Q1

REPORT INFORMATION
  Report Type: Spontaneous
  Country: CH (occurrence: CH)
  Receive Date: 20250205
  Receipt Date: 20250205
  Transmission Date: 20250409
  Serious: No
  Sender: EXELIXIS
  Company Number: CH-BRISTOL-MYERS SQUIBB COMPANY-2024-098871

PATIENT
  Age: 72 Year

DRUGS (18)
  1. CABOMETYX [Suspect]
     Active Substance: CABOZANTINIB S-MALATE
     Indication: Metastatic renal cell carcinoma
  2. OPDIVO [Suspect]
     Active Substance: NIVOLUMAB
     Indication: Metastatic renal cell carcinoma
     Dates: start: 20230328
  3. OPDIVO [Suspect]
     Active Substance: NIVOLUMAB
     Dates: start: 20230413
  4. OPDIVO [Suspect]
     Active Substance: NIVOLUMAB
     Dates: start: 20230508
  5. OPDIVO [Suspect]
     Active Substance: NIVOLUMAB
     Dates: start: 20230601
  6. OPDIVO [Suspect]
     Active Substance: NIVOLUMAB
     Dates: start: 20230706
  7. OPDIVO [Suspect]
     Active Substance: NIVOLUMAB
     Dates: start: 20230720
  8. OPDIVO [Suspect]
     Active Substance: NIVOLUMAB
     Dates: start: 20230803
  9. OPDIVO [Suspect]
     Active Substance: NIVOLUMAB
     Dates: start: 20230817
  10. OPDIVO [Suspect]
     Active Substance: NIVOLUMAB
     Dates: start: 20230831
  11. OPDIVO [Suspect]
     Active Substance: NIVOLUMAB
     Dates: start: 20230914
  12. OPDIVO [Suspect]
     Active Substance: NIVOLUMAB
     Dates: start: 20230928
  13. OPDIVO [Suspect]
     Active Substance: NIVOLUMAB
     Dates: start: 20231012
  14. OPDIVO [Suspect]
     Active Substance: NIVOLUMAB
     Dates: start: 20231026
  15. OPDIVO [Suspect]
     Active Substance: NIVOLUMAB
     Dates: start: 20231109
  16. OPDIVO [Suspect]
     Active Substance: NIVOLUMAB
     Dates: start: 20231127
  17. AXITINIB [Suspect]
     Active Substance: AXITINIB
     Indication: Metastatic renal cell carcinoma
  18. PEMBROLIZUMAB [Suspect]
     Active Substance: PEMBROLIZUMAB
     Indication: Metastatic renal cell carcinoma

REACTIONS (1)
  - Off label use [Unknown]
